FAERS Safety Report 6039073-1 (Version None)
Quarter: 2009Q1

REPORT INFORMATION
  Report Type: 
  Country: None (occurrence: None)
  Receive Date: 20090115
  Receipt Date: 20081001
  Transmission Date: 20090719
  Serious: No
  Sender: FDA-Public Use
  Company Number: US-KINGPHARMUSA00001-K200801161

PATIENT
  Age: 49 Year
  Sex: Female
  Weight: 58.957 kg

DRUGS (2)
  1. EPIPEN [Suspect]
     Dosage: UNK, SINGLE
     Dates: start: 20081001, end: 20081001
  2. OMACOR                             /01403701/ [Concomitant]
     Indication: BLOOD CHOLESTEROL INCREASED

REACTIONS (9)
  - ACCIDENTAL EXPOSURE [None]
  - EXPIRED DRUG ADMINISTERED [None]
  - FEELING COLD [None]
  - INJECTION SITE ANAESTHESIA [None]
  - INJECTION SITE DISCOLOURATION [None]
  - INJECTION SITE HAEMATOMA [None]
  - INJECTION SITE PAIN [None]
  - INJECTION SITE PALLOR [None]
  - VASOCONSTRICTION [None]
